FAERS Safety Report 5797683-0 (Version None)
Quarter: 2008Q2

REPORT INFORMATION
  Report Type: 
  Country: None (occurrence: None)
  Receive Date: 20080630
  Receipt Date: 20080623
  Transmission Date: 20081010
  Serious: Yes (Death, Hospitalization, Other)
  Sender: FDA-Public Use
  Company Number: 163-21880-08060730

PATIENT
  Age: 78 Year
  Sex: Female

DRUGS (13)
  1. REVLIMID [Suspect]
     Indication: MULTIPLE MYELOMA
     Dosage: 10 MG, TIW (M, W, F) AFTER DIALYSIS, ORAL; 5 MG, ORAL
     Route: 048
     Dates: start: 20080108, end: 20080301
  2. REVLIMID [Suspect]
     Indication: MULTIPLE MYELOMA
     Dosage: 10 MG, TIW (M, W, F) AFTER DIALYSIS, ORAL; 5 MG, ORAL
     Route: 048
     Dates: start: 20080328, end: 20080601
  3. DECADRON [Concomitant]
  4. VICODIN [Concomitant]
  5. FENTANYL [Concomitant]
  6. MEGESTROL ACETATE [Concomitant]
  7. ZOLPIDEM TARTRATE [Concomitant]
  8. FLUTICASONE PROPIONATE [Concomitant]
  9. METOPROLOL TARTRATE [Concomitant]
  10. SIMVASTATIN [Concomitant]
  11. HYDRALAZINE HCL [Concomitant]
  12. PROCHLORPERAZINE MALEATE [Concomitant]
  13. RENAGEL [Concomitant]

REACTIONS (5)
  - DISEASE PROGRESSION [None]
  - FALL [None]
  - MENTAL STATUS CHANGES [None]
  - MULTIPLE MYELOMA [None]
  - PANCYTOPENIA [None]
